FAERS Safety Report 7519855-7 (Version None)
Quarter: 2011Q2

REPORT INFORMATION
  Report Type: 
  Country: None (occurrence: None)
  Receive Date: 20110602
  Receipt Date: 20110518
  Transmission Date: 20111010
  Serious: No
  Sender: FDA-Public Use
  Company Number: US-B.I. PHARMACEUTICALS,INC./RIDGEFIELD-2011-BP-13352BP

PATIENT
  Age: 75 Year
  Sex: Female

DRUGS (12)
  1. TOPROL-XL [Concomitant]
     Indication: HYPERTENSION
  2. NASACORT [Concomitant]
     Indication: SINUS DISORDER
  3. PRADAXA [Suspect]
     Indication: ATRIAL FIBRILLATION
     Dosage: 300 MG
     Route: 048
     Dates: start: 20110318
  4. BONIVA [Concomitant]
     Indication: BONE DISORDER
  5. PREMARIN [Concomitant]
     Indication: HORMONE LEVEL ABNORMAL
  6. BENADRYL [Concomitant]
     Indication: SINUS DISORDER
  7. SIMVASTATIN [Concomitant]
     Indication: BLOOD CHOLESTEROL INCREASED
  8. OMEPRAZOLE [Concomitant]
     Indication: DYSPEPSIA
  9. AMLODIPINE BESYLATE [Concomitant]
     Indication: HYPERTENSION
  10. CLARINEX [Concomitant]
     Indication: SINUS DISORDER
  11. VITAMINS [Concomitant]
     Indication: PROPHYLAXIS
  12. ASPIRIN [Concomitant]
     Indication: PROPHYLAXIS

REACTIONS (1)
  - MUSCLE SPASMS [None]
